FAERS Safety Report 6170342-0 (Version None)
Quarter: 2009Q2

REPORT INFORMATION
  Report Type: 
  Country: None (occurrence: None)
  Receive Date: 20090428
  Receipt Date: 20090416
  Transmission Date: 20091009
  Serious: Yes (Other)
  Sender: FDA-Public Use
  Company Number: US-PFIZER INC-2009200190

PATIENT
  Sex: Female
  Weight: 32 kg

DRUGS (6)
  1. GENOTROPIN [Suspect]
     Indication: PRADER-WILLI SYNDROME
     Dosage: UNK
     Route: 058
     Dates: start: 20001001
  2. VASOTEC [Concomitant]
     Dosage: 15 MG, 2X/DAY
  3. LASIX [Concomitant]
  4. AMLODIPINE BESILATE [Concomitant]
  5. DIGOXIN [Concomitant]
  6. COUMADIN [Concomitant]

REACTIONS (2)
  - AORTIC VALVE REPLACEMENT [None]
  - CARDIAC PACEMAKER INSERTION [None]
